FAERS Safety Report 17186977 (Version 5)
Quarter: 2025Q1

REPORT INFORMATION
  Report Type: Spontaneous
  Country: US (occurrence: US)
  Receive Date: 20191220
  Receipt Date: 20250120
  Transmission Date: 20250408
  Serious: Yes (Hospitalization, Other)
  Sender: TEVA
  Company Number: US-TEVA-2019-US-1154864

PATIENT
  Age: 66 Year
  Sex: Male
  Weight: 83.46 kg

DRUGS (24)
  1. HYDROCHLOROTHIAZIDE\VALSARTAN [Suspect]
     Active Substance: HYDROCHLOROTHIAZIDE\VALSARTAN
     Indication: Hypertension
     Route: 048
  2. HYDROCHLOROTHIAZIDE\VALSARTAN [Suspect]
     Active Substance: HYDROCHLOROTHIAZIDE\VALSARTAN
     Indication: Hypertension
     Route: 065
  3. HYDROCHLOROTHIAZIDE\VALSARTAN [Suspect]
     Active Substance: HYDROCHLOROTHIAZIDE\VALSARTAN
     Indication: Hypertension
     Route: 048
     Dates: start: 20130705, end: 20151028
  4. METFORMIN [Concomitant]
     Active Substance: METFORMIN HYDROCHLORIDE
     Indication: Type 2 diabetes mellitus
     Dates: start: 2009
  5. GLIMEPIRIDE [Concomitant]
     Active Substance: GLIMEPIRIDE
     Indication: Type 2 diabetes mellitus
     Dates: start: 2009
  6. ADVIL [Concomitant]
     Active Substance: IBUPROFEN
     Indication: Pain
     Dates: start: 2015
  7. TYLENOL [Concomitant]
     Active Substance: ACETAMINOPHEN
     Indication: Pain
     Dates: start: 1999
  8. GLUCOTROL XL [Concomitant]
     Active Substance: GLIPIZIDE
     Indication: Product used for unknown indication
     Dosage: DOSAGE TEXT: EVERY MORNING
     Route: 048
  9. DIOVAN HCT [Suspect]
     Active Substance: HYDROCHLOROTHIAZIDE\VALSARTAN
     Indication: Product used for unknown indication
     Route: 048
  10. PRAVASTATIN SODIUM [Concomitant]
     Active Substance: PRAVASTATIN SODIUM
     Indication: Product used for unknown indication
     Dosage: DOSAGE TEXT: AT BEDTIME
     Route: 048
  11. CIALIS [Concomitant]
     Active Substance: TADALAFIL
     Indication: Product used for unknown indication
  12. ACTOS [Concomitant]
     Active Substance: PIOGLITAZONE HYDROCHLORIDE
     Indication: Product used for unknown indication
     Route: 048
  13. FISH OIL [Concomitant]
     Active Substance: FISH OIL
     Indication: Product used for unknown indication
     Route: 048
  14. ASPIRIN [Concomitant]
     Active Substance: ASPIRIN
     Indication: Product used for unknown indication
     Route: 048
  15. LOTRISONE [Concomitant]
     Active Substance: BETAMETHASONE DIPROPIONATE\CLOTRIMAZOLE
     Indication: Product used for unknown indication
  16. OLMESARTAN [Concomitant]
     Active Substance: OLMESARTAN
     Indication: Product used for unknown indication
  17. VALSARTAN AND HYDROCHLOROTHIAZIDE [Suspect]
     Active Substance: HYDROCHLOROTHIAZIDE\VALSARTAN
     Indication: Product used for unknown indication
     Route: 065
  18. HYDROCHLOROTHIAZIDE\VALSARTAN [Suspect]
     Active Substance: HYDROCHLOROTHIAZIDE\VALSARTAN
     Indication: Product used for unknown indication
     Route: 065
  19. HYDROCHLOROTHIAZIDE\VALSARTAN [Suspect]
     Active Substance: HYDROCHLOROTHIAZIDE\VALSARTAN
     Indication: Product used for unknown indication
     Route: 065
  20. VALSARTAN [Suspect]
     Active Substance: VALSARTAN
     Indication: Hypertension
     Route: 048
  21. STEGLATRO [Concomitant]
     Active Substance: ERTUGLIFLOZIN PIDOLATE
     Indication: Product used for unknown indication
     Route: 065
  22. VALSARTAN [Suspect]
     Active Substance: VALSARTAN
     Indication: Hypertension
     Dosage: SOLCO
     Route: 048
     Dates: start: 20160830, end: 20180801
  23. INSULIN NOS [Concomitant]
     Active Substance: INSULIN NOS
     Indication: Type 2 diabetes mellitus
     Dates: start: 2009
  24. JANUVIA [Concomitant]
     Active Substance: SITAGLIPTIN PHOSPHATE
     Indication: Type 2 diabetes mellitus
     Route: 048
     Dates: start: 2009

REACTIONS (2)
  - Rectal cancer [Recovered/Resolved]
  - Colorectal adenoma [Unknown]

NARRATIVE: CASE EVENT DATE: 20190611
